FAERS Safety Report 9158573 (Version 1)
Quarter: 2013Q1

REPORT INFORMATION
  Report Type: Spontaneous
  Country: US (occurrence: US)
  Receive Date: 20130312
  Receipt Date: 20130312
  Transmission Date: 20140127
  Serious: Yes (Other)
  Sender: FDA-Public Use
  Company Number: US-PFIZER INC-2013082157

PATIENT
  Age: 56 Year
  Sex: Female
  Weight: 93 kg

DRUGS (2)
  1. CHANTIX [Suspect]
     Indication: SMOKING CESSATION THERAPY
     Dosage: UNK
     Dates: start: 2011, end: 201204
  2. MORPHINE SULFATE [Interacting]
     Indication: CHEST PAIN
     Dosage: UNK
     Dates: start: 201204

REACTIONS (4)
  - Chest pain [Unknown]
  - Drug interaction [Unknown]
  - Withdrawal syndrome [Unknown]
  - Anxiety [Unknown]
